FAERS Safety Report 17980025 (Version 4)
Quarter: 2020Q3

REPORT INFORMATION
  Report Type: Spontaneous
  Country: US (occurrence: US)
  Receive Date: 20200703
  Receipt Date: 20200730
  Transmission Date: 20201103
  Serious: Yes (Other)
  Sender: FDA-Public Use
  Company Number: US-GLAXOSMITHKLINE-US2019AMR240508

PATIENT
  Age: 48 Year
  Sex: Female

DRUGS (3)
  1. ZEJULA [Suspect]
     Active Substance: NIRAPARIB
     Indication: OVARIAN CANCER
     Dosage: 300 MG, QD
     Route: 048
     Dates: start: 201805
  2. ZEJULA [Suspect]
     Active Substance: NIRAPARIB
     Dosage: 1 DF, QD
     Route: 048
  3. ZEJULA [Suspect]
     Active Substance: NIRAPARIB
     Dosage: 300 MG, QD
     Route: 048

REACTIONS (20)
  - Stent placement [Unknown]
  - Carbohydrate antigen 125 increased [Not Recovered/Not Resolved]
  - Neoplasm progression [Not Recovered/Not Resolved]
  - Tumour marker abnormal [Unknown]
  - Intentional product use issue [Unknown]
  - Weight increased [Unknown]
  - Procedural pain [Unknown]
  - Blood count abnormal [Unknown]
  - Appetite disorder [Unknown]
  - Anxiety [Unknown]
  - Recurrent cancer [Unknown]
  - Kidney infection [Recovered/Resolved]
  - Stress [Unknown]
  - Dry mouth [Unknown]
  - Arthralgia [Unknown]
  - Sleep disorder [Unknown]
  - Dysgeusia [Unknown]
  - Nasopharyngitis [Unknown]
  - Urinary tract infection [Unknown]
  - Cognitive disorder [Unknown]

NARRATIVE: CASE EVENT DATE: 201805
